FAERS Safety Report 7714174 (Version 7)
Quarter: 2013Q1

REPORT INFORMATION
  Report Type: Report from Study
  Country: DE (occurrence: DE)
  Receive Date: 20101216
  Receipt Date: 20130312
  Transmission Date: 20140127
  Serious: Yes (Hospitalization)
  Sender: FDA-Public Use
  Company Number: DE-ROCHE-718654

PATIENT
  Age: 55 Year
  Sex: Female
  Weight: 55 kg

DRUGS (11)
  1. CAPECITABINE [Suspect]
     Indication: RECTAL CANCER
     Dosage: SCHEDULE: 825 MG.M2 PO BID D1-33 W/O WEEKENDS+ OPTIONAL BOOST. DATE OF LAST DOSE: 23 AUG 2010.
     Route: 048
  2. CAPECITABINE [Suspect]
     Route: 048
  3. OXALIPLATIN [Suspect]
     Indication: RECTAL CANCER
     Dosage: SCHEDULE: 50 MG/M2 IV ON D1, 8, 15, 22 + 29.DATE OF LAST DOSE PRIOR TO SAE: 23 AUGUST 2010.
     Route: 042
  4. OXALIPLATIN [Suspect]
     Route: 042
  5. LOPERAMIDE [Concomitant]
     Indication: DIARRHOEA
     Route: 048
  6. MCP [Concomitant]
     Indication: VOMITING
     Dosage: 40 DROPS 3-4 TIMES PER DAY
     Route: 048
  7. KEVATRIL [Concomitant]
     Indication: VOMITING
     Route: 065
  8. PANTOPRAZOLE [Concomitant]
     Dosage: SCHEDULE: IF NEEDED.
     Route: 048
     Dates: start: 20100729, end: 20100809
  9. IBUPROFEN [Concomitant]
     Indication: PAIN
     Dosage: SCHEDULE: IF NEEDED.
     Route: 048
     Dates: start: 20100729, end: 20100803
  10. CLEXANE [Concomitant]
     Route: 065
  11. PASPERTIN [Concomitant]
     Route: 048

REACTIONS (6)
  - Pyrexia [Recovered/Resolved]
  - Nausea [Recovered/Resolved]
  - Vomiting [Recovered/Resolved]
  - Hepatic enzyme increased [Recovered/Resolved]
  - Diarrhoea [Recovered/Resolved]
  - General physical health deterioration [Recovered/Resolved]
